FAERS Safety Report 8848747 (Version 1)
Quarter: 2012Q4

REPORT INFORMATION
  Report Type: Spontaneous
  Country: US (occurrence: None)
  Receive Date: 20121017
  Receipt Date: 20121017
  Transmission Date: 20130627
  Serious: Yes (Life-Threatening)
  Sender: FDA-Public Use
  Company Number: None

PATIENT
  Age: 63 Year
  Sex: Female
  Weight: 112.04 kg

DRUGS (1)
  1. CUBICIN [Suspect]
     Indication: WOUND INFECTION DUE TO STAPHYLOCOCCUS AUREUS
     Dosage: 670MG Q24HR IV Drip
     Route: 041
     Dates: start: 20120828, end: 20121011

REACTIONS (2)
  - Blood creatine phosphokinase increased [None]
  - Muscle spasms [None]
